FAERS Safety Report 25039569 (Version 1)
Quarter: 2025Q1

REPORT INFORMATION
  Report Type: Spontaneous
  Country: US (occurrence: US)
  Receive Date: 20250305
  Receipt Date: 20250305
  Transmission Date: 20250409
  Serious: No
  Sender: JOHNSON AND JOHNSON
  Company Number: US-JNJFOC-20250172100

PATIENT
  Sex: Female

DRUGS (19)
  1. UPTRAVI [Suspect]
     Active Substance: SELEXIPAG
     Indication: Product used for unknown indication
     Route: 048
  2. TREPROSTINIL [Suspect]
     Active Substance: TREPROSTINIL
     Indication: Pulmonary arterial hypertension
     Route: 042
  3. VITAMINS [Concomitant]
     Active Substance: VITAMINS
  4. SILDENAFIL [Concomitant]
     Active Substance: SILDENAFIL
  5. POTASSIUM CHLORIDE [Concomitant]
     Active Substance: POTASSIUM CHLORIDE
  6. ACETAMINOPHEN\HYDROCODONE [Concomitant]
     Active Substance: ACETAMINOPHEN\HYDROCODONE
  7. IMODIUM A-D [Concomitant]
     Active Substance: LOPERAMIDE HYDROCHLORIDE
  8. FLUOXETINE HYDROCHLORIDE [Concomitant]
     Active Substance: FLUOXETINE HYDROCHLORIDE
  9. SPIRONOLACTONE [Concomitant]
     Active Substance: SPIRONOLACTONE
  10. MIRTAZAPINE [Concomitant]
     Active Substance: MIRTAZAPINE
  11. TREPROSTINIL [Concomitant]
     Active Substance: TREPROSTINIL
  12. OPSUMIT [Concomitant]
     Active Substance: MACITENTAN
  13. BUMETANIDE [Concomitant]
     Active Substance: BUMETANIDE
  14. ALBUTEROL SULFATE [Concomitant]
     Active Substance: ALBUTEROL SULFATE
  15. QVAR REDIHALER [Concomitant]
     Active Substance: BECLOMETHASONE DIPROPIONATE
  16. OXYGEN [Concomitant]
     Active Substance: OXYGEN
  17. GABAPENTIN [Concomitant]
     Active Substance: GABAPENTIN
  18. ONDANSETRON HYDROCHLORIDE [Concomitant]
     Active Substance: ONDANSETRON HYDROCHLORIDE
  19. LORATADINE [Concomitant]
     Active Substance: LORATADINE

REACTIONS (3)
  - Headache [Unknown]
  - Nausea [Unknown]
  - Presyncope [Unknown]
